FAERS Safety Report 7980694-4 (Version None)
Quarter: 2011Q4

REPORT INFORMATION
  Report Type: 
  Country: None (occurrence: None)
  Receive Date: 20111214
  Receipt Date: 20111202
  Transmission Date: 20120403
  Serious: Yes (Other)
  Sender: FDA-Public Use
  Company Number: US-ELI_LILLY_AND_COMPANY-US201112001365

PATIENT
  Sex: Female

DRUGS (5)
  1. NOVOLOG [Concomitant]
  2. HUMALOG [Suspect]
     Indication: DIABETES MELLITUS
     Dosage: UNK, UNKNOWN
  3. LEVEMIR [Concomitant]
  4. NOVOLIN N [Concomitant]
     Dosage: UNK
  5. VICTOZA [Concomitant]

REACTIONS (2)
  - RASH [None]
  - ORGANISING PNEUMONIA [None]
